FAERS Safety Report 10261006 (Version 1)
Quarter: 2014Q2

REPORT INFORMATION
  Report Type: Spontaneous
  Country: US (occurrence: US)
  Receive Date: 20140626
  Receipt Date: 20140626
  Transmission Date: 20141212
  Serious: No
  Sender: FDA-Public Use
  Company Number: US-PFIZER INC-2014174982

PATIENT
  Age: 67 Year
  Sex: Male

DRUGS (3)
  1. XELJANZ [Suspect]
     Indication: RHEUMATOID ARTHRITIS
     Dosage: 5 MG, 2X/DAY
     Route: 048
     Dates: start: 20140319, end: 20140331
  2. XELJANZ [Suspect]
     Dosage: 1 DF, DAILY
     Dates: start: 201406, end: 201406
  3. XELJANZ [Suspect]
     Dosage: 1 DF, 2X/DAY
     Dates: start: 201406

REACTIONS (1)
  - Urinary tract infection [Recovered/Resolved]
